FAERS Safety Report 16899976 (Version 1)
Quarter: 2019Q4

REPORT INFORMATION
  Report Type: Report from Study
  Country: US (occurrence: US)
  Receive Date: 20191009
  Receipt Date: 20191009
  Transmission Date: 20200122
  Serious: Yes (Hospitalization)
  Sender: FDA-Public Use
  Company Number: US-EISAI MEDICAL RESEARCH-EC-2019-063354

PATIENT
  Sex: Female
  Weight: 102 kg

DRUGS (3)
  1. OLMESARTAN-HYDROCHLOROTHIAZIDE [Concomitant]
     Active Substance: OLMESARTAN
  2. LENVIMA [Suspect]
     Active Substance: LENVATINIB
     Indication: RENAL CANCER
     Route: 048
     Dates: start: 20190920
  3. CARVEDILOL. [Concomitant]
     Active Substance: CARVEDILOL

REACTIONS (4)
  - Diarrhoea [Unknown]
  - Dehydration [Unknown]
  - Hypotension [Unknown]
  - Skin ulcer [Unknown]

NARRATIVE: CASE EVENT DATE: 2019
